FAERS Safety Report 6132789-8 (Version None)
Quarter: 2009Q1

REPORT INFORMATION
  Report Type: 
  Country: None (occurrence: None)
  Receive Date: 20090326
  Receipt Date: 20090320
  Transmission Date: 20090719
  Serious: Yes (Other)
  Sender: FDA-Public Use
  Company Number: CA-BAYER-200915100NA

PATIENT
  Age: 58 Year
  Sex: Female
  Weight: 56 kg

DRUGS (1)
  1. MAGNEVIST [Suspect]
     Indication: NEOPLASM
     Dosage: TOTAL DAILY DOSE: 11 ML
     Route: 042
     Dates: start: 20090306, end: 20090306

REACTIONS (2)
  - DYSPHAGIA [None]
  - THROAT TIGHTNESS [None]
